FAERS Safety Report 14381570 (Version 1)
Quarter: 2018Q1

REPORT INFORMATION
  Report Type: Other
  Country: US (occurrence: US)
  Receive Date: 20180112
  Receipt Date: 20180112
  Transmission Date: 20180509
  Serious: Yes (Death)
  Sender: FDA-Public Use
  Company Number: US-GENUS_LIFESCIENCES-USA-POI0580201800046

PATIENT
  Age: 48 Year
  Sex: Male

DRUGS (7)
  1. CLONAZEPAM. [Suspect]
     Active Substance: CLONAZEPAM
     Dates: end: 2016
  2. ATENOLOL. [Suspect]
     Active Substance: ATENOLOL
     Dates: end: 2016
  3. OXYCODONE HCL CAPSULES [Suspect]
     Active Substance: OXYCODONE HYDROCHLORIDE
     Dates: end: 2016
  4. DULOXETINE. [Suspect]
     Active Substance: DULOXETINE
     Dates: end: 2016
  5. TAMSULOSIN [Suspect]
     Active Substance: TAMSULOSIN
     Dates: end: 2016
  6. AMLODIPINE [Suspect]
     Active Substance: AMLODIPINE BESYLATE
     Dates: end: 2016
  7. SILDENAFIL. [Suspect]
     Active Substance: SILDENAFIL
     Dates: end: 2016

REACTIONS (3)
  - Cardiac arrest [Fatal]
  - Respiratory arrest [Fatal]
  - Completed suicide [Fatal]

NARRATIVE: CASE EVENT DATE: 2016
